FAERS Safety Report 5324850-2 (Version None)
Quarter: 2007Q2

REPORT INFORMATION
  Report Type: 
  Country: None (occurrence: None)
  Receive Date: 20070515
  Receipt Date: 20070502
  Transmission Date: 20071010
  Serious: Yes (Other)
  Sender: FDA-Public Use
  Company Number: US-JNJFOC-20070500836

PATIENT
  Age: 7 Year
  Sex: Male
  Weight: 27.22 kg

DRUGS (2)
  1. TOPAMAX [Suspect]
     Indication: TOURETTE'S DISORDER
     Route: 048
     Dates: start: 20061201
  2. TOPAMAX [Suspect]
     Dates: start: 20060801, end: 20061201

REACTIONS (4)
  - ANHIDROSIS [None]
  - DYSPNOEA [None]
  - ERYTHEMA [None]
  - PANIC ATTACK [None]
